FAERS Safety Report 5889948-9 (Version None)
Quarter: 2008Q3

REPORT INFORMATION
  Report Type: 
  Country: None (occurrence: None)
  Receive Date: 20080919
  Receipt Date: 20080904
  Transmission Date: 20090109
  Serious: Yes (Life-Threatening)
  Sender: FDA-Public Use
  Company Number: AR-GENENTECH-267668

PATIENT
  Age: 77 Year
  Sex: Male

DRUGS (2)
  1. AVASTIN [Suspect]
     Indication: COLON CANCER
     Dosage: 390 UNK, UNK
     Route: 042
     Dates: start: 20080728
  2. CARDIAC MEDICATION NOS [Concomitant]
     Indication: CARDIAC DISORDER

REACTIONS (1)
  - PERICARDITIS [None]
